FAERS Safety Report 17298511 (Version 1)
Quarter: 2020Q1

REPORT INFORMATION
  Report Type: Spontaneous
  Country: IT (occurrence: IT)
  Receive Date: 20200122
  Receipt Date: 20200122
  Transmission Date: 20200409
  Serious: Yes (Other)
  Sender: FDA-Public Use
  Company Number: IT-TEVA-2020-IT-1171279

PATIENT
  Age: 63 Year
  Sex: Male

DRUGS (1)
  1. AMIODARONE [Suspect]
     Active Substance: AMIODARONE
     Route: 065

REACTIONS (2)
  - Aerophagia [Unknown]
  - Tachycardia [Unknown]

NARRATIVE: CASE EVENT DATE: 20190803
